FAERS Safety Report 8957772 (Version 1)
Quarter: 2012Q4

REPORT INFORMATION
  Report Type: 
  Country: CA (occurrence: CA)
  Receive Date: 20121211
  Receipt Date: 20121211
  Transmission Date: 20130627
  Serious: Yes (Other)
  Sender: FDA-Public Use
  Company Number: CA-BAYER-2012-127184

PATIENT
  Sex: Male

DRUGS (2)
  1. XARELTO [Suspect]
  2. ASPIRIN [Suspect]

REACTIONS (1)
  - International normalised ratio increased [None]
